FAERS Safety Report 6449109-1 (Version None)
Quarter: 2009Q4

REPORT INFORMATION
  Report Type: 
  Country: None (occurrence: None)
  Receive Date: 20091119
  Receipt Date: 20091119
  Transmission Date: 20100525
  Serious: No
  Sender: FDA-Public Use
  Company Number: None

PATIENT

DRUGS (1)
  1. TRAZODONE HCL [Suspect]
     Indication: INSOMNIA
     Dosage: 75MG 1 AN EVENING PO
     Route: 048
     Dates: start: 20021001, end: 20070801

REACTIONS (2)
  - LOSS OF CONSCIOUSNESS [None]
  - PULMONARY HYPERTENSION [None]
